FAERS Safety Report 6252796-4 (Version None)
Quarter: 2009Q3

REPORT INFORMATION
  Report Type: 
  Country: None (occurrence: None)
  Receive Date: 20090701
  Receipt Date: 20090618
  Transmission Date: 20100115
  Serious: Yes (Other)
  Sender: FDA-Public Use
  Company Number: US-ORACLE-2009S1000233

PATIENT
  Sex: Male

DRUGS (2)
  1. CUBICIN [Suspect]
     Indication: DRUG USE FOR UNKNOWN INDICATION
     Route: 042
     Dates: start: 20090618
  2. CUBICIN [Suspect]
     Route: 042
     Dates: end: 20090601

REACTIONS (1)
  - DISSEMINATED INTRAVASCULAR COAGULATION [None]
